FAERS Safety Report 6048722-3 (Version None)
Quarter: 2009Q1

REPORT INFORMATION
  Report Type: 
  Country: None (occurrence: None)
  Receive Date: 20090123
  Receipt Date: 20090112
  Transmission Date: 20090719
  Serious: Yes (Hospitalization)
  Sender: FDA-Public Use
  Company Number: GR-ROCHE-608055

PATIENT
  Age: 44 Year
  Sex: Female

DRUGS (7)
  1. CEFTRIAXONE SODIUM [Suspect]
     Route: 042
  2. CEFTRIAXONE SODIUM [Suspect]
     Route: 042
  3. AZITHROMYCIN [Concomitant]
     Route: 042
  4. MOXIFLOXACIN HCL [Concomitant]
     Route: 042
  5. LINEZOLID [Concomitant]
     Route: 042
  6. RIFAMPICIN [Concomitant]
  7. CLINDAMYCIN HCL [Concomitant]

REACTIONS (2)
  - ACUTE RESPIRATORY DISTRESS SYNDROME [None]
  - PNEUMONIA STAPHYLOCOCCAL [None]
